FAERS Safety Report 23981018 (Version 1)
Quarter: 2024Q2

REPORT INFORMATION
  Report Type: Spontaneous
  Country: US (occurrence: None)
  Receive Date: 20240614
  Receipt Date: 20240614
  Transmission Date: 20240716
  Serious: Yes (Hospitalization)
  Sender: FDA-Public Use
  Company Number: None

PATIENT
  Age: 55 Year
  Sex: Male
  Weight: 75.8 kg

DRUGS (1)
  1. CARVYKTI [Suspect]
     Active Substance: CILTACABTAGENE AUTOLEUCEL
     Indication: Plasma cell myeloma
     Dosage: 1 DF DOSAGE FORM ONCE INTRAVENOUS?
     Route: 042
     Dates: start: 20240404, end: 20240404

REACTIONS (2)
  - Cytokine release syndrome [None]
  - Neutropenia [None]

NARRATIVE: CASE EVENT DATE: 20240413
